FAERS Safety Report 14998997 (Version 2)
Quarter: 2018Q2

REPORT INFORMATION
  Report Type: Spontaneous
  Country: JP (occurrence: JP)
  Receive Date: 20180612
  Receipt Date: 20180614
  Transmission Date: 20180711
  Serious: Yes (Death)
  Sender: FDA-Public Use
  Company Number: JP-ROCHE-2137849

PATIENT
  Age: 78 Year
  Sex: Male

DRUGS (1)
  1. ACTEMRA [Suspect]
     Active Substance: TOCILIZUMAB
     Indication: CASTLEMAN^S DISEASE
     Dosage: DOSAGE IS UNCERTAIN.
     Route: 065

REACTIONS (5)
  - Off label use [Unknown]
  - Fungal sepsis [Fatal]
  - Product use in unapproved indication [Unknown]
  - Cryptococcosis [Fatal]
  - Disseminated intravascular coagulation [Fatal]
